FAERS Safety Report 9258723 (Version 1)
Quarter: 2013Q2

REPORT INFORMATION
  Report Type: Spontaneous
  Country: US (occurrence: US)
  Receive Date: 20130426
  Receipt Date: 20130426
  Transmission Date: 20140414
  Serious: Yes (Other)
  Sender: FDA-Public Use
  Company Number: US-TEVA-400514USA

PATIENT
  Age: 67 Year
  Sex: Female

DRUGS (8)
  1. CARBOPLATIN [Suspect]
     Indication: OVARIAN CANCER RECURRENT
     Dosage: INDUCTION THERAPY
  2. OXALIPLATIN [Suspect]
     Indication: OVARIAN CANCER RECURRENT
  3. CISPLATIN [Suspect]
     Indication: OVARIAN CANCER RECURRENT
     Route: 033
  4. BEVACIZUMAB [Suspect]
     Indication: OVARIAN CANCER RECURRENT
     Route: 065
  5. DOXORUBICIN LIPOSOMAL [Suspect]
     Indication: OVARIAN CANCER RECURRENT
     Route: 065
  6. GEMCITABINE [Suspect]
     Indication: OVARIAN CANCER RECURRENT
     Route: 065
  7. PACLITAXEL [Concomitant]
     Indication: OVARIAN CANCER RECURRENT
     Route: 065
  8. TOPOTECAN [Concomitant]
     Indication: OVARIAN CANCER RECURRENT
     Route: 065

REACTIONS (2)
  - Renal failure chronic [Recovering/Resolving]
  - Haemolysis [Recovering/Resolving]
